FAERS Safety Report 5246862-X (Version None)
Quarter: 2007Q1

REPORT INFORMATION
  Report Type: 
  Country: None (occurrence: None)
  Receive Date: 20070226
  Receipt Date: 20070216
  Transmission Date: 20070707
  Serious: Yes (Disabling)
  Sender: FDA-Public Use
  Company Number: GB-PFIZER INC-2007013253

PATIENT
  Age: 68 Year
  Sex: Male
  Weight: 101 kg

DRUGS (11)
  1. SPIRONOLACTONE [Suspect]
     Indication: CARDIAC FAILURE
     Route: 048
     Dates: start: 20060928, end: 20061010
  2. ACETYLSALICYLIC ACID SRT [Concomitant]
  3. ATENOLOL [Concomitant]
     Route: 048
  4. ATORVASTATIN [Concomitant]
  5. AVANDAMET [Concomitant]
     Dosage: FREQ:DAILY
  6. DF118 [Concomitant]
     Dosage: FREQ:AS NECESSARY
  7. GABAPENTIN [Concomitant]
  8. MONOMAX [Concomitant]
     Route: 048
  9. NICORANDIL [Concomitant]
     Route: 048
  10. RAMIPRIL [Concomitant]
     Route: 048
  11. SERTRALINE [Concomitant]

REACTIONS (5)
  - CARDIOGENIC SHOCK [None]
  - COLD SWEAT [None]
  - FATIGUE [None]
  - FEELING COLD [None]
  - URINE OUTPUT DECREASED [None]
